APPROVED DRUG PRODUCT: LORTAB
Active Ingredient: ACETAMINOPHEN; HYDROCODONE BITARTRATE
Strength: 500MG;5MG
Dosage Form/Route: TABLET;ORAL
Application: A087722 | Product #001
Applicant: UCB INC
Approved: Jul 9, 1982 | RLD: No | RS: No | Type: DISCN